FAERS Safety Report 8577441-4 (Version None)
Quarter: 2012Q3

REPORT INFORMATION
  Report Type: 
  Country: None (occurrence: None)
  Receive Date: 20120807
  Receipt Date: 20120731
  Transmission Date: 20120928
  Serious: Yes (Other)
  Sender: FDA-Public Use
  Company Number: PHHY2012NL067528

PATIENT
  Sex: Female

DRUGS (13)
  1. ACETAMINOPHEN [Concomitant]
     Dosage: 1000 MG IF NECESSORY
     Dates: start: 20120706
  2. LOSARTAN POTASSIUM [Concomitant]
     Dosage: 50 MG
     Dates: start: 20120621
  3. LANOXIN [Concomitant]
     Dosage: .062 MG
     Dates: start: 20120116
  4. CEFTRIAXONE [Suspect]
     Indication: RESPIRATORY TRACT INFECTION
     Dosage: 1000 MG
     Route: 030
     Dates: start: 20120706, end: 20120713
  5. FLUVOXAMINE MALEATE [Concomitant]
     Dosage: 50 MG
     Dates: start: 20120605
  6. LORAZEPAM [Concomitant]
     Dosage: 1 MG
     Dates: start: 20120425
  7. FENTANYL [Concomitant]
     Dates: start: 20120505
  8. MIDAZOLAM [Concomitant]
     Dosage: 1 MG/ML
     Dates: start: 20120116
  9. ACENOCOUMAROL [Interacting]
     Dosage: 1 MG
     Dates: start: 20120116
  10. KETOCONAZOLE [Concomitant]
     Dosage: 20 MG/G
     Dates: start: 20120504
  11. PANTOPRAZOLE [Concomitant]
     Dosage: 20 MG
     Dates: start: 20120116
  12. METOPROLOL TARTRATE [Concomitant]
     Dosage: 100 MG
     Dates: start: 20120116
  13. FUROSEMIDE [Concomitant]
     Dosage: 40 MG
     Dates: start: 20120614

REACTIONS (2)
  - INTERNATIONAL NORMALISED RATIO INCREASED [None]
  - DRUG INTERACTION [None]
